FAERS Safety Report 11089422 (Version 2)
Quarter: 2015Q2

REPORT INFORMATION
  Report Type: Spontaneous
  Country: US (occurrence: US)
  Receive Date: 20150505
  Receipt Date: 20150630
  Transmission Date: 20150821
  Serious: No
  Sender: FDA-Public Use
  Company Number: US-ASTRAZENECA-2015SE39508

PATIENT
  Age: 673 Month
  Sex: Male
  Weight: 71.7 kg

DRUGS (3)
  1. NEXIUM [Suspect]
     Active Substance: ESOMEPRAZOLE MAGNESIUM
     Indication: GASTROOESOPHAGEAL REFLUX DISEASE
     Route: 048
     Dates: start: 2001, end: 201411
  2. VYTORIN [Concomitant]
     Active Substance: EZETIMIBE\SIMVASTATIN
     Indication: BLOOD CHOLESTEROL INCREASED
     Dosage: 10/20 MG,EVERY OTHER DAY
     Route: 048
  3. SUCRALFATE. [Concomitant]
     Active Substance: SUCRALFATE
     Indication: GASTROINTESTINAL INJURY
     Route: 048

REACTIONS (3)
  - Therapy cessation [Unknown]
  - Gastrooesophageal reflux disease [Unknown]
  - Gastrointestinal motility disorder [Recovering/Resolving]

NARRATIVE: CASE EVENT DATE: 201411
